FAERS Safety Report 14208082 (Version 1)
Quarter: 2017Q4

REPORT INFORMATION
  Report Type: Spontaneous
  Country: US (occurrence: US)
  Receive Date: 20171120
  Receipt Date: 20171120
  Transmission Date: 20180321
  Serious: Yes (Other)
  Sender: FDA-Public Use
  Company Number: None

PATIENT
  Sex: Female

DRUGS (1)
  1. DORZOLAMIDE [Suspect]
     Active Substance: DORZOLAMIDE
     Indication: GLAUCOMA
     Route: 047

REACTIONS (7)
  - Joint injury [None]
  - Fall [None]
  - Eye injury [None]
  - Dizziness [None]
  - Limb injury [None]
  - Feeling abnormal [None]
  - Syncope [None]

NARRATIVE: CASE EVENT DATE: 20160215
